FAERS Safety Report 17699282 (Version 1)
Quarter: 2020Q2

REPORT INFORMATION
  Report Type: Report from Study
  Country: EG (occurrence: EG)
  Receive Date: 20200423
  Receipt Date: 20200423
  Transmission Date: 20200714
  Serious: Yes (Other)
  Sender: FDA-Public Use
  Company Number: NVSC2020EG107357

PATIENT
  Age: 48 Year
  Sex: Male

DRUGS (8)
  1. PROCORALAN [Concomitant]
     Active Substance: IVABRADINE
     Indication: PRODUCT USED FOR UNKNOWN INDICATION
     Dosage: 1 DF, BID
     Route: 065
  2. VAXATO [Concomitant]
     Indication: PRODUCT USED FOR UNKNOWN INDICATION
     Dosage: 1 DF, QD
     Route: 065
  3. ENTRESTO [Suspect]
     Active Substance: SACUBITRIL\VALSARTAN
     Indication: CARDIAC FAILURE
     Dosage: 1 DF (50 MG), BID
     Route: 048
     Dates: start: 201910
  4. FORXIGA [Concomitant]
     Active Substance: DAPAGLIFLOZIN
     Indication: PRODUCT USED FOR UNKNOWN INDICATION
     Dosage: 1 DF, QD
     Route: 065
  5. ENTRESTO [Suspect]
     Active Substance: SACUBITRIL\VALSARTAN
     Dosage: 0.5 DF (1/2 OF 100 MG), BID
     Route: 048
     Dates: start: 202003, end: 202004
  6. EXAMIDE [Concomitant]
     Indication: PRODUCT USED FOR UNKNOWN INDICATION
     Dosage: 1 DF, QD
     Route: 065
  7. ENTRESTO [Suspect]
     Active Substance: SACUBITRIL\VALSARTAN
     Dosage: 1 DF (100 MG), BID
     Route: 048
     Dates: start: 202003
  8. NITRO MACK [Concomitant]
     Indication: PRODUCT USED FOR UNKNOWN INDICATION
     Dosage: 1 DF, BID
     Route: 065

REACTIONS (10)
  - Angina pectoris [Not Recovered/Not Resolved]
  - Dysstasia [Not Recovered/Not Resolved]
  - Nervous system disorder [Recovered/Resolved]
  - Mobility decreased [Not Recovered/Not Resolved]
  - Cardiac disorder [Recovered/Resolved]
  - Wrong technique in product usage process [Unknown]
  - Gait disturbance [Not Recovered/Not Resolved]
  - Dyspnoea [Not Recovered/Not Resolved]
  - Cardiac disorder [Recovered/Resolved]
  - Nervous system disorder [Recovered/Resolved]

NARRATIVE: CASE EVENT DATE: 201910
